FAERS Safety Report 5884768-3 (Version None)
Quarter: 2008Q3

REPORT INFORMATION
  Report Type: 
  Country: None (occurrence: None)
  Receive Date: 20080916
  Receipt Date: 20080908
  Transmission Date: 20090109
  Serious: Yes (Other)
  Sender: FDA-Public Use
  Company Number: DE-AMGEN-UK306524

PATIENT
  Sex: Male

DRUGS (1)
  1. VECTIBIX [Suspect]

REACTIONS (1)
  - RASH PUSTULAR [None]
